FAERS Safety Report 18044087 (Version 2)
Quarter: 2020Q4

REPORT INFORMATION
  Report Type: Spontaneous
  Country: US (occurrence: US)
  Receive Date: 20200720
  Receipt Date: 20201014
  Transmission Date: 20210113
  Serious: No
  Sender: FDA-Public Use
  Company Number: US-SA-2020SA185377

PATIENT

DRUGS (14)
  1. VIT D [Concomitant]
     Active Substance: VITAMIN D NOS
  2. NAPROXEN. [Concomitant]
     Active Substance: NAPROXEN
  3. NEOMYCIN AND POLYMYXIN B SULFATES AND DEXAMETHASONE [Concomitant]
     Active Substance: DEXAMETHASONE\NEOMYCIN SULFATE\POLYMYXIN B SULFATE
  4. DUPIXENT [Suspect]
     Active Substance: DUPILUMAB
     Indication: DERMATITIS ALLERGIC
  5. MULTIVITAMINS [VITAMINS NOS] [Concomitant]
     Active Substance: VITAMINS
  6. ERYTHROMYCIN. [Concomitant]
     Active Substance: ERYTHROMYCIN
  7. PRAVASTATIN SODIUM. [Concomitant]
     Active Substance: PRAVASTATIN SODIUM
  8. ALLEGRA ALLERGY [Concomitant]
     Active Substance: FEXOFENADINE HYDROCHLORIDE
     Dosage: UNK
  9. BENADRYL [Concomitant]
     Active Substance: DIPHENHYDRAMINE HYDROCHLORIDE
     Dosage: UNK
  10. DUPIXENT [Suspect]
     Active Substance: DUPILUMAB
     Indication: DERMATITIS ATOPIC
     Dosage: 300 MG, QOW
     Route: 058
     Dates: start: 201907
  11. VITAMIN C [Concomitant]
     Active Substance: ASCORBIC ACID
  12. PROBIOTIC ACIDOPHILUS [LACTOBACILLUS ACIDOPHILUS] [Concomitant]
  13. DIMETAPP [ASPARTAME;BROMPHENIRAMINE MALEATE;PHENYLALANINE;PHENYLPROPAN [Concomitant]
     Dosage: UNK
  14. SYSTANE (HYPROMELLOSE 2910 (4000 MPA.S)) [Concomitant]
     Active Substance: HYPROMELLOSE 2910 (4000 MPA.S)

REACTIONS (10)
  - Eyelid irritation [Recovering/Resolving]
  - Dry eye [Recovering/Resolving]
  - Skin erosion [Recovering/Resolving]
  - Initial insomnia [Unknown]
  - Pruritus [Unknown]
  - Rash pruritic [Recovering/Resolving]
  - Eye pruritus [Unknown]
  - Visual impairment [Recovered/Resolved]
  - Dermatitis atopic [Not Recovered/Not Resolved]
  - Hyperhidrosis [Recovering/Resolving]

NARRATIVE: CASE EVENT DATE: 2020
